FAERS Safety Report 12220746 (Version 1)
Quarter: 2016Q1

REPORT INFORMATION
  Report Type: Spontaneous
  Country: US (occurrence: None)
  Receive Date: 20160329
  Receipt Date: 20160329
  Transmission Date: 20160526
  Serious: No
  Sender: FDA-Public Use
  Company Number: None

PATIENT
  Age: 74 Year
  Sex: Female
  Weight: 90.27 kg

DRUGS (1)
  1. PROMACTA [Suspect]
     Active Substance: ELTROMBOPAG OLAMINE
     Indication: THROMBOCYTOPENIA
     Route: 048
     Dates: start: 20160303

REACTIONS (9)
  - Pain in extremity [None]
  - Hypertension [None]
  - Blood creatinine increased [None]
  - Tachycardia [None]
  - Arthralgia [None]
  - Drug intolerance [None]
  - Nausea [None]
  - Peripheral swelling [None]
  - Chest pain [None]

NARRATIVE: CASE EVENT DATE: 20160324
